FAERS Safety Report 10021373 (Version 1)
Quarter: 2014Q1

REPORT INFORMATION
  Report Type: Report from Study
  Country: US (occurrence: US)
  Receive Date: 20140319
  Receipt Date: 20140319
  Transmission Date: 20141002
  Serious: Yes (Other)
  Sender: FDA-Public Use
  Company Number: PHEH2014US005289

PATIENT
  Sex: Female

DRUGS (1)
  1. MYFORTIC [Suspect]
     Indication: RENAL TRANSPLANT
     Dosage: 540 MG, BID
     Route: 048

REACTIONS (6)
  - Osteoarthritis [Unknown]
  - Arthralgia [Unknown]
  - Sinusitis [Unknown]
  - Pneumonia cryptococcal [Unknown]
  - Respiratory tract infection [Unknown]
  - Hypertension [Unknown]
